FAERS Safety Report 17731330 (Version 7)
Quarter: 2022Q2

REPORT INFORMATION
  Report Type: Report from Study
  Country: None (occurrence: US)
  Receive Date: 20200430
  Receipt Date: 20220412
  Transmission Date: 20220721
  Serious: Yes (Hospitalization)
  Sender: FDA-Public Use
  Company Number: US-AKCEA THERAPEUTICS-2020IS001126

PATIENT
  Age: 75 Year
  Sex: Female
  Weight: 80.5 kg

DRUGS (28)
  1. TEGSEDI [Suspect]
     Active Substance: INOTERSEN SODIUM
     Indication: Hereditary neuropathic amyloidosis
     Route: 058
     Dates: start: 20190822
  2. DEVICE [Suspect]
     Active Substance: DEVICE
  3. TEGSEDI [Suspect]
     Active Substance: INOTERSEN SODIUM
     Route: 058
  4. CLONIDINE [Concomitant]
     Active Substance: CLONIDINE
     Route: 048
  5. LATANOPROST [Concomitant]
     Active Substance: LATANOPROST
     Route: 047
  6. BREO ELLIPTA [Concomitant]
     Active Substance: FLUTICASONE FUROATE\VILANTEROL TRIFENATATE
     Route: 055
  7. VITAMIN D3 [Concomitant]
     Active Substance: CHOLECALCIFEROL
     Route: 048
  8. FISH OIL [Concomitant]
     Active Substance: FISH OIL
     Route: 048
  9. SINGULAIR [Concomitant]
     Active Substance: MONTELUKAST SODIUM
     Route: 048
  10. HYDRALAZINE [Concomitant]
     Active Substance: HYDRALAZINE HYDROCHLORIDE
     Route: 048
  11. REPATHA [Concomitant]
     Active Substance: EVOLOCUMAB
     Route: 058
  12. PROAIR HFA [Concomitant]
     Active Substance: ALBUTEROL SULFATE
     Route: 055
  13. VITAMIN B12 [Concomitant]
     Active Substance: CYANOCOBALAMIN
     Route: 060
  14. RETINOL [Concomitant]
     Active Substance: RETINOL
     Route: 065
  15. PANTOPRAZOLE [Concomitant]
     Active Substance: PANTOPRAZOLE
     Route: 048
  16. FUROSEMIDE [Concomitant]
     Active Substance: FUROSEMIDE
     Route: 048
  17. TYLENOL EXTRA STRENGTH [Concomitant]
     Active Substance: ACETAMINOPHEN
     Route: 048
  18. CLOPIDOGREL [Concomitant]
     Active Substance: CLOPIDOGREL BISULFATE
     Route: 048
  19. TOCOPHEROL [Concomitant]
     Active Substance: TOCOPHEROL
     Route: 048
  20. ASPIRIN [Concomitant]
     Active Substance: ASPIRIN
     Route: 048
  21. LEVOTHYROXINE [Concomitant]
     Active Substance: LEVOTHYROXINE
     Route: 048
  22. SPIRONOLACTONE [Concomitant]
     Active Substance: SPIRONOLACTONE
     Route: 048
  23. HUMULIN NOS [Concomitant]
     Active Substance: INSULIN HUMAN
     Route: 058
  24. METOPROLOL [Concomitant]
     Active Substance: METOPROLOL
     Route: 048
  25. LOSARTAN [Concomitant]
     Active Substance: LOSARTAN
     Route: 048
  26. TRAZODONE [Concomitant]
     Active Substance: TRAZODONE HYDROCHLORIDE
     Route: 048
  27. POTASSIUM CHLORIDE [Concomitant]
     Active Substance: POTASSIUM CHLORIDE
     Route: 065
  28. VICTOZA [Concomitant]
     Active Substance: LIRAGLUTIDE
     Route: 065

REACTIONS (28)
  - Haemorrhage [Unknown]
  - Weight decreased [Not Recovered/Not Resolved]
  - Dry mouth [Not Recovered/Not Resolved]
  - Constipation [Not Recovered/Not Resolved]
  - Decreased appetite [Not Recovered/Not Resolved]
  - Coating in mouth [Unknown]
  - Tongue coated [Unknown]
  - Neuropathy peripheral [Not Recovered/Not Resolved]
  - Palpitations [Unknown]
  - Anxiety [Unknown]
  - Blood pressure increased [Unknown]
  - Oedema peripheral [Unknown]
  - Neuralgia [Not Recovered/Not Resolved]
  - Joint stiffness [Not Recovered/Not Resolved]
  - Dizziness [Not Recovered/Not Resolved]
  - Gait disturbance [Not Recovered/Not Resolved]
  - Platelet count decreased [Unknown]
  - Blood creatinine abnormal [Not Recovered/Not Resolved]
  - Urine protein/creatinine ratio increased [Not Recovered/Not Resolved]
  - Urine abnormality [Unknown]
  - Protein urine present [Not Recovered/Not Resolved]
  - Nitrite urine present [Unknown]
  - Urinary sediment present [Unknown]
  - Bacterial test positive [Not Recovered/Not Resolved]
  - Urinary casts [Unknown]
  - Crystal urine present [Unknown]
  - Glomerular filtration rate decreased [Unknown]
  - Red blood cells urine positive [Not Recovered/Not Resolved]

NARRATIVE: CASE EVENT DATE: 20200101
